FAERS Safety Report 9162361 (Version 2)
Quarter: 2013Q2

REPORT INFORMATION
  Report Type: Spontaneous
  Country: US (occurrence: US)
  Receive Date: 20130314
  Receipt Date: 20130429
  Transmission Date: 20140414
  Serious: Yes (Other)
  Sender: FDA-Public Use
  Company Number: US-PFIZER INC-2013083751

PATIENT
  Age: 14 Year
  Sex: Female
  Weight: 41.72 kg

DRUGS (1)
  1. CHILDRENS ADVIL [Suspect]
     Indication: NASOPHARYNGITIS
     Dosage: 3 TEASPOONS, 1X/DAY
     Route: 048
     Dates: start: 20130311, end: 20130311

REACTIONS (1)
  - Hypersensitivity [Recovered/Resolved]
